FAERS Safety Report 8558272 (Version 2)
Quarter: 2014Q2

REPORT INFORMATION
  Report Type: Spontaneous
  Country: US (occurrence: US)
  Receive Date: 20120511
  Receipt Date: 20140508
  Transmission Date: 20141212
  Serious: No
  Sender: FDA-Public Use
  Company Number: US-GLAXOSMITHKLINE-A0953754A

PATIENT
  Age: 60 Year
  Sex: Female
  Weight: 68.2 kg

DRUGS (7)
  1. TYKERB [Suspect]
     Indication: BREAST CANCER
     Dosage: 250MG SIX TIMES PER DAY
     Route: 048
     Dates: start: 20111110, end: 20111115
  2. VITAMIN D [Concomitant]
  3. FISH OIL CAPSULES [Concomitant]
  4. SIMVASTATIN [Concomitant]
  5. BABY ASPIRIN [Concomitant]
  6. FENOFIBRATE [Concomitant]
  7. FEMARA [Concomitant]

REACTIONS (6)
  - Rash [Recovering/Resolving]
  - Pruritus [Recovering/Resolving]
  - Pain [Unknown]
  - Deformity [Unknown]
  - Dry skin [Unknown]
  - Diarrhoea [Unknown]
